FAERS Safety Report 9197116 (Version 1)
Quarter: 2013Q1

REPORT INFORMATION
  Report Type: Spontaneous
  Country: US (occurrence: None)
  Receive Date: 20120709
  Receipt Date: 20120709
  Transmission Date: 20140127
  Serious: Yes (Hospitalization)
  Sender: FDA-Public Use
  Company Number: PHHY2011US58336

PATIENT
  Age: 80 Year
  Sex: Female

DRUGS (1)
  1. GLEEVEC [Suspect]
     Indication: CHRONIC MYELOID LEUKAEMIA
     Route: 048
     Dates: start: 20110601, end: 20110628

REACTIONS (6)
  - Hepatotoxicity [None]
  - Oedema peripheral [None]
  - Abdominal pain upper [None]
  - Vomiting [None]
  - Fatigue [None]
  - Rash [None]
